FAERS Safety Report 19279808 (Version 1)
Quarter: 2021Q2

REPORT INFORMATION
  Report Type: Other
  Country: CN (occurrence: CN)
  Receive Date: 20210520
  Receipt Date: 20210520
  Transmission Date: 20210717
  Serious: Yes (Death)
  Sender: FDA-Public Use
  Company Number: CN-ROCHE-2834293

PATIENT

DRUGS (1)
  1. RITUXIMAB. [Suspect]
     Active Substance: RITUXIMAB
     Indication: IMMUNE THROMBOCYTOPENIA
     Dosage: CONTINUOUSLY GIVEN FOR 4 WEEKS (ON DAY 1, 8, 15, AND 22)
     Route: 065

REACTIONS (1)
  - Haemorrhage intracranial [Fatal]
